FAERS Safety Report 18610457 (Version 1)
Quarter: 2020Q4

REPORT INFORMATION
  Report Type: Spontaneous
  Country: US (occurrence: US)
  Receive Date: 20201214
  Receipt Date: 20201214
  Transmission Date: 20210114
  Serious: No
  Sender: FDA-Public Use
  Company Number: US-CADILA HEALTHCARE LIMITED-US-ZYDUS-055157

PATIENT

DRUGS (2)
  1. RISPERIDONE 1 MILLIGRAM TABLET [Suspect]
     Active Substance: RISPERIDONE
     Indication: AUTISM SPECTRUM DISORDER
  2. RISPERIDONE 1 MILLIGRAM TABLET [Suspect]
     Active Substance: RISPERIDONE
     Indication: AGGRESSION
     Dosage: 0.5 MILLIGRAM, QD
     Route: 048
     Dates: start: 202008, end: 20200817

REACTIONS (6)
  - Drug ineffective [Unknown]
  - Dyskinesia [Not Recovered/Not Resolved]
  - Hypersensitivity [Recovered/Resolved]
  - Choking [Recovered/Resolved]
  - Muscle twitching [Not Recovered/Not Resolved]
  - Cough [Recovered/Resolved]

NARRATIVE: CASE EVENT DATE: 202008
